FAERS Safety Report 7056675-4 (Version None)
Quarter: 2010Q4

REPORT INFORMATION
  Report Type: 
  Country: None (occurrence: None)
  Receive Date: 20101021
  Receipt Date: 20101011
  Transmission Date: 20110411
  Serious: Yes (Life-Threatening, Hospitalization)
  Sender: FDA-Public Use
  Company Number: DE-AMGEN GMBH-QUU418355

PATIENT

DRUGS (1)
  1. NPLATE [Suspect]
     Indication: IDIOPATHIC THROMBOCYTOPENIC PURPURA
     Dosage: UNK UNK, UNK
     Route: 058
     Dates: start: 20100201, end: 20100501

REACTIONS (7)
  - ACUTE CORONARY SYNDROME [None]
  - ACUTE MYOCARDIAL INFARCTION [None]
  - HYPOTHYROIDISM [None]
  - NEUTROPHIL COUNT INCREASED [None]
  - PLATELET AGGREGATION INCREASED [None]
  - THROMBOCYTOSIS [None]
  - VENTRICULAR FIBRILLATION [None]
